FAERS Safety Report 15427980 (Version 1)
Quarter: 2018Q3

REPORT INFORMATION
  Report Type: Report from Study
  Country: JP (occurrence: JP)
  Receive Date: 20180926
  Receipt Date: 20180926
  Transmission Date: 20181010
  Serious: Yes (Hospitalization)
  Sender: FDA-Public Use
  Company Number: JP-009507513-1809JPN002130J

PATIENT
  Age: 68 Year
  Sex: Female
  Weight: 47 kg

DRUGS (8)
  1. DECADRON [Concomitant]
     Active Substance: DEXAMETHASONE
     Indication: TRANSITIONAL CELL CARCINOMA
     Dosage: 3 MG, QD
     Route: 048
     Dates: start: 20180417
  2. GEMCITABINE HYDROCHLORIDE. [Suspect]
     Active Substance: GEMCITABINE HYDROCHLORIDE
     Indication: TRANSITIONAL CELL CARCINOMA
     Dosage: UNK
     Dates: end: 20180221
  3. DECADRON [Concomitant]
     Active Substance: DEXAMETHASONE
     Dosage: 1 MG, QD
     Route: 048
     Dates: start: 20180417
  4. OXYCODONE [Concomitant]
     Active Substance: OXYCODONE
     Indication: TRANSITIONAL CELL CARCINOMA
     Dosage: 20 MG, BID
     Route: 048
     Dates: start: 20180402
  5. KEYTRUDA [Suspect]
     Active Substance: PEMBROLIZUMAB
     Indication: TRANSITIONAL CELL CARCINOMA
     Dosage: 200 MG, Q3W
     Route: 041
     Dates: start: 20180322, end: 20180510
  6. OXINORM [Concomitant]
     Indication: TRANSITIONAL CELL CARCINOMA
     Dosage: 10 MG, UNK
     Route: 048
     Dates: start: 20180329
  7. CISPLATIN. [Suspect]
     Active Substance: CISPLATIN
     Indication: TRANSITIONAL CELL CARCINOMA
     Dosage: UNK
     Dates: end: 20180221
  8. FENTANYL. [Concomitant]
     Active Substance: FENTANYL
     Indication: TRANSITIONAL CELL CARCINOMA
     Dosage: 2.1 MG, PRN
     Route: 065

REACTIONS (2)
  - Platelet count decreased [Not Recovered/Not Resolved]
  - Pyrexia [Recovered/Resolved]

NARRATIVE: CASE EVENT DATE: 20180330
